FAERS Safety Report 16127064 (Version 1)
Quarter: 2019Q2

REPORT INFORMATION
  Report Type: Spontaneous
  Country: US (occurrence: US)
  Receive Date: 20190327
  Receipt Date: 20190327
  Transmission Date: 20190711
  Serious: Yes (Hospitalization)
  Sender: FDA-Public Use
  Company Number: None

PATIENT
  Age: 43 Year
  Sex: Male

DRUGS (6)
  1. MORPHINE [Concomitant]
     Active Substance: MORPHINE
  2. LISINOPRIL. [Concomitant]
     Active Substance: LISINOPRIL
  3. HUMIRA [Suspect]
     Active Substance: ADALIMUMAB
     Indication: COLITIS
     Dosage: ?          OTHER FREQUENCY:QW;?
     Route: 058
     Dates: start: 20181109
  4. HUMIRA [Suspect]
     Active Substance: ADALIMUMAB
     Indication: RECTAL HAEMORRHAGE
     Dosage: ?          OTHER FREQUENCY:QW;?
     Route: 058
     Dates: start: 20181109
  5. HYDROCHLOROT [Concomitant]
     Active Substance: HYDROCHLOROTHIAZIDE
  6. KLONOPIN [Concomitant]
     Active Substance: CLONAZEPAM

REACTIONS (1)
  - Cholelithiasis [None]

NARRATIVE: CASE EVENT DATE: 20190325
